FAERS Safety Report 11668814 (Version 1)
Quarter: 2015Q4

REPORT INFORMATION
  Report Type: Spontaneous
  Country: US (occurrence: US)
  Receive Date: 20151027
  Receipt Date: 20151027
  Transmission Date: 20160304
  Serious: No
  Sender: FDA-Public Use
  Company Number: US-ELI_LILLY_AND_COMPANY-US201003008088

PATIENT
  Age: 58 Year
  Sex: Female

DRUGS (2)
  1. CALCIUM 600 + D [Concomitant]
     Active Substance: CALCIUM\VITAMIN D
     Dosage: 630 MG, DAILY (1/D)
  2. FORTEO [Suspect]
     Active Substance: TERIPARATIDE
     Indication: OSTEOPOROSIS
     Dosage: 20 UG, DAILY (1/D)
     Dates: start: 200908

REACTIONS (14)
  - Nausea [Not Recovered/Not Resolved]
  - Fat tissue increased [Not Recovered/Not Resolved]
  - Injection site pain [Not Recovered/Not Resolved]
  - Injection site erythema [Not Recovered/Not Resolved]
  - Musculoskeletal stiffness [Unknown]
  - Abdominal pain [Unknown]
  - Urinary tract infection [Unknown]
  - Back pain [Unknown]
  - Arthralgia [Recovering/Resolving]
  - Muscle spasms [Not Recovered/Not Resolved]
  - Nephrolithiasis [Not Recovered/Not Resolved]
  - Injection site swelling [Not Recovered/Not Resolved]
  - Muscular weakness [Not Recovered/Not Resolved]
  - Dysuria [Unknown]

NARRATIVE: CASE EVENT DATE: 201001
